FAERS Safety Report 13559053 (Version 1)
Quarter: 2017Q2

REPORT INFORMATION
  Report Type: Spontaneous
  Country: FR (occurrence: FR)
  Receive Date: 20170518
  Receipt Date: 20170518
  Transmission Date: 20170830
  Serious: Yes (Other)
  Sender: FDA-Public Use
  Company Number: FR-JNJFOC-20170512332

PATIENT

DRUGS (1)
  1. METHYLPHENIDATE HYDROCHLORIDE. [Suspect]
     Active Substance: METHYLPHENIDATE HYDROCHLORIDE
     Indication: PRODUCT USED FOR UNKNOWN INDICATION
     Route: 065

REACTIONS (8)
  - Intentional self-injury [Unknown]
  - Anxiety [Unknown]
  - Aggression [Unknown]
  - Hallucination, tactile [Unknown]
  - Suicidal behaviour [Unknown]
  - Depression [Unknown]
  - Hallucination, visual [Unknown]
  - Agitation [Unknown]
